FAERS Safety Report 15778743 (Version 1)
Quarter: 2019Q1

REPORT INFORMATION
  Report Type: Spontaneous
  Country: CN (occurrence: CN)
  Receive Date: 20190101
  Receipt Date: 20190101
  Transmission Date: 20190417
  Serious: Yes (Hospitalization)
  Sender: FDA-Public Use
  Company Number: CN-ROCHE-2237619

PATIENT
  Age: 68 Year
  Sex: Male
  Weight: 40 kg

DRUGS (4)
  1. FLUOROURACIL. [Suspect]
     Active Substance: FLUOROURACIL
     Indication: COLON CANCER
     Route: 042
     Dates: start: 20181020, end: 20181020
  2. FLUOROURACIL. [Suspect]
     Active Substance: FLUOROURACIL
     Dosage: CONTINUOUS INJECTION 46 HOURS
     Route: 042
     Dates: start: 20181020
  3. AVASTIN [Suspect]
     Active Substance: BEVACIZUMAB
     Indication: COLON CANCER
     Route: 041
     Dates: start: 20181020, end: 20181020
  4. OXALIPLATIN. [Suspect]
     Active Substance: OXALIPLATIN
     Indication: COLON CANCER
     Route: 041
     Dates: start: 20181020, end: 20181020

REACTIONS (2)
  - White blood cell count decreased [Recovered/Resolved]
  - Pyrexia [Recovered/Resolved]

NARRATIVE: CASE EVENT DATE: 20181023
